FAERS Safety Report 10210041 (Version 1)
Quarter: 2014Q2

REPORT INFORMATION
  Report Type: Report from Study
  Country: FR (occurrence: FR)
  Receive Date: 20140602
  Receipt Date: 20140602
  Transmission Date: 20141212
  Serious: Yes (Hospitalization)
  Sender: FDA-Public Use
  Company Number: FR-ASTELLAS-2014EU006601

PATIENT
  Age: 58 Year
  Sex: Female

DRUGS (5)
  1. TACROLIMUS [Suspect]
     Indication: PROPHYLAXIS AGAINST TRANSPLANT REJECTION
     Route: 048
     Dates: start: 20130619
  2. TACROLIMUS [Suspect]
     Route: 048
     Dates: start: 20130812
  3. TACROLIMUS [Suspect]
     Route: 048
     Dates: start: 20130813
  4. CELLCEPT                           /01275102/ [Concomitant]
     Indication: IMMUNOSUPPRESSION
     Dosage: UNK UNK, UNKNOWN FREQ.
     Route: 065
     Dates: start: 20130619
  5. SOLUPRED                           /00016201/ [Concomitant]
     Indication: IMMUNOSUPPRESSION
     Dosage: UNK UNK, UNKNOWN FREQ.
     Route: 065
     Dates: start: 20130619

REACTIONS (2)
  - Hypercreatininaemia [Recovered/Resolved]
  - Immunosuppressant drug level increased [Unknown]
